FAERS Safety Report 9457987 (Version 2)
Quarter: 2013Q3

REPORT INFORMATION
  Report Type: Spontaneous
  Country: JP (occurrence: JP)
  Receive Date: 20130814
  Receipt Date: 20130913
  Transmission Date: 20140515
  Serious: Yes (Other)
  Sender: FDA-Public Use
  Company Number: JP-009507513-1308JPN005447

PATIENT
  Age: 48 Year
  Sex: Male

DRUGS (2)
  1. REMERON [Suspect]
     Indication: DEPRESSION
     Dosage: 15 MG , QD
     Route: 048
     Dates: start: 20130105, end: 20130815
  2. REMERON [Suspect]
     Dosage: 7.5 MG , QD
     Route: 048
     Dates: start: 20130816

REACTIONS (1)
  - Convulsion [Recovering/Resolving]
